FAERS Safety Report 10276174 (Version 1)
Quarter: 2014Q3

REPORT INFORMATION
  Report Type: Spontaneous
  Country: US (occurrence: US)
  Receive Date: 20140703
  Receipt Date: 20140703
  Transmission Date: 20150326
  Serious: Yes (Other)
  Sender: FDA-Public Use
  Company Number: US-BAYER-2014-099466

PATIENT
  Sex: Female

DRUGS (1)
  1. MIRENA [Suspect]
     Active Substance: LEVONORGESTREL
     Indication: CONTRACEPTION
     Dosage: 20 MCG/24HR, CONT
     Route: 015
     Dates: start: 200908, end: 20120629

REACTIONS (6)
  - Medical device pain [None]
  - Procedural pain [None]
  - Device dislocation [None]
  - Injury [None]
  - Vaginal infection [None]
  - Embedded device [None]

NARRATIVE: CASE EVENT DATE: 2009
